FAERS Safety Report 9581793 (Version 2)
Quarter: 2014Q1

REPORT INFORMATION
  Report Type: Spontaneous
  Country: US (occurrence: US)
  Receive Date: 20131002
  Receipt Date: 20140321
  Transmission Date: 20141002
  Serious: Yes (Hospitalization)
  Sender: FDA-Public Use
  Company Number: US-ENDO PHARMACEUTICALS INC.-PROP20130315

PATIENT
  Sex: Female
  Weight: 103.51 kg

DRUGS (8)
  1. PROPOXYPHENE NAPSYLATE/ACETAMINOPHEN TABLETS [Suspect]
     Indication: FIBROMYALGIA
     Dosage: UNKNOWN
     Route: 048
     Dates: start: 1997, end: 2011
  2. PROPOXYPHENE NAPSYLATE/ACETAMINOPHEN TABLETS [Suspect]
     Indication: PAIN
  3. HYDROCHLOROTHIAZIDE CAPSULES 12.5MG [Concomitant]
     Indication: HYPERTENSION
     Route: 048
  4. LOSARTAN POTASSIUM TABLETS 100MG [Concomitant]
     Indication: HYPERTENSION
     Route: 048
  5. ALPRAZOLAM IR TABLETS 0.5MG [Concomitant]
     Indication: INSOMNIA
     Route: 048
  6. ESCITALOPRAM [Concomitant]
     Indication: DEPRESSION
     Route: 048
  7. AMIODARONE [Concomitant]
     Indication: CARDIAC DISORDER
     Route: 048
  8. COUMADIN [Concomitant]
     Indication: ANTICOAGULANT THERAPY
     Dosage: UNKNOWN
     Route: 048

REACTIONS (4)
  - Arrhythmia [Not Recovered/Not Resolved]
  - Atrial fibrillation [Not Recovered/Not Resolved]
  - Atrial flutter [Not Recovered/Not Resolved]
  - Cardiac failure congestive [Not Recovered/Not Resolved]
